FAERS Safety Report 6447186-5 (Version None)
Quarter: 2009Q4

REPORT INFORMATION
  Report Type: 
  Country: None (occurrence: None)
  Receive Date: 20091110
  Receipt Date: 20090729
  Transmission Date: 20100525
  Serious: No
  Sender: FDA-Public Use
  Company Number: 1000007847

PATIENT
  Age: 55 Year
  Sex: Female

DRUGS (5)
  1. SAVELLA [Suspect]
     Indication: FIBROMYALGIA
     Dosage: SEE IMAGE
     Route: 048
     Dates: start: 20090720, end: 20090720
  2. SAVELLA [Suspect]
     Indication: FIBROMYALGIA
     Dosage: SEE IMAGE
     Route: 048
     Dates: start: 20090721, end: 20090722
  3. SAVELLA [Suspect]
     Indication: FIBROMYALGIA
     Dosage: SEE IMAGE
     Route: 048
     Dates: start: 20090727, end: 20090727
  4. SAVELLA [Suspect]
     Indication: FIBROMYALGIA
     Dates: start: 20090701, end: 20090701
  5. SAVELLA [Suspect]
     Indication: FIBROMYALGIA
     Dates: start: 20090728

REACTIONS (2)
  - HEART RATE INCREASED [None]
  - PALPITATIONS [None]
